FAERS Safety Report 16244948 (Version 1)
Quarter: 2019Q2

REPORT INFORMATION
  Report Type: Spontaneous
  Country: US (occurrence: US)
  Receive Date: 20190426
  Receipt Date: 20190426
  Transmission Date: 20190711
  Serious: Yes (Other)
  Sender: FDA-Public Use
  Company Number: US-PFIZER INC-2019174734

PATIENT
  Age: 61 Year
  Sex: Female
  Weight: 77.11 kg

DRUGS (1)
  1. AROMASIN [Suspect]
     Active Substance: EXEMESTANE
     Indication: BREAST CANCER FEMALE
     Dosage: 25 MG, DAILY
     Route: 048
     Dates: start: 2016

REACTIONS (14)
  - Arthralgia [Not Recovered/Not Resolved]
  - Quality of life decreased [Unknown]
  - Weight increased [Not Recovered/Not Resolved]
  - Balance disorder [Unknown]
  - Body height decreased [Unknown]
  - Gait disturbance [Unknown]
  - Peripheral swelling [Unknown]
  - Pain in extremity [Unknown]
  - Condition aggravated [Not Recovered/Not Resolved]
  - Depression [Not Recovered/Not Resolved]
  - Arthritis [Not Recovered/Not Resolved]
  - Dysstasia [Unknown]
  - Hypokinesia [Unknown]
  - Hyperphagia [Not Recovered/Not Resolved]

NARRATIVE: CASE EVENT DATE: 2016
